FAERS Safety Report 11703022 (Version 2)
Quarter: 2015Q4

REPORT INFORMATION
  Report Type: Spontaneous
  Country: US (occurrence: US)
  Receive Date: 20151105
  Receipt Date: 20151109
  Transmission Date: 20160304
  Serious: Yes (Life-Threatening, Other)
  Sender: FDA-Public Use
  Company Number: PHEH2015US022589

PATIENT
  Age: 64 Year
  Sex: Female
  Weight: 119 kg

DRUGS (6)
  1. OXYCODONE [Concomitant]
     Active Substance: OXYCODONE
     Indication: PAIN
     Dosage: 10 UNK, QD
     Route: 048
  2. SIMVASTATIN. [Concomitant]
     Active Substance: SIMVASTATIN
     Indication: BLOOD CHOLESTEROL INCREASED
     Dosage: 40 UNK, QD
     Route: 048
  3. PROZAC [Concomitant]
     Active Substance: FLUOXETINE HYDROCHLORIDE
     Indication: DEPRESSION
     Dosage: 20 G/L, QD
     Route: 048
  4. VESICARE [Concomitant]
     Active Substance: SOLIFENACIN SUCCINATE
     Indication: INCONTINENCE
     Dosage: 10 UNK, QD
     Route: 048
  5. GILENYA [Suspect]
     Active Substance: FINGOLIMOD HYDROCHLORIDE
     Indication: PRODUCT USED FOR UNKNOWN INDICATION
     Dosage: 0.5 MG, QD
     Route: 048
     Dates: start: 20110613, end: 20151027
  6. GABAPENTIN. [Concomitant]
     Active Substance: GABAPENTIN
     Indication: PAIN
     Dosage: 100, UNIT NOT REPORTED, QD
     Route: 048

REACTIONS (1)
  - Lung adenocarcinoma [Unknown]

NARRATIVE: CASE EVENT DATE: 20151026
